FAERS Safety Report 22590902 (Version 2)
Quarter: 2023Q2

REPORT INFORMATION
  Report Type: Spontaneous
  Country: RO (occurrence: None)
  Receive Date: 20230612
  Receipt Date: 20230623
  Transmission Date: 20230722
  Serious: Yes (Death, Other)
  Sender: FDA-Public Use
  Company Number: 2023A134668

PATIENT
  Age: 48 Year
  Sex: Female

DRUGS (1)
  1. TAGRISSO [Suspect]
     Active Substance: OSIMERTINIB
     Indication: Lung neoplasm malignant
     Route: 048
     Dates: end: 202304

REACTIONS (5)
  - Death [Fatal]
  - Metastases to bone [Fatal]
  - General physical health deterioration [Fatal]
  - Eating disorder [Fatal]
  - Vomiting [Fatal]
